FAERS Safety Report 5300966-1 (Version None)
Quarter: 2007Q1

REPORT INFORMATION
  Report Type: 
  Country: None (occurrence: None)
  Receive Date: 20070208
  Receipt Date: 20060109
  Transmission Date: 20070707
  Serious: Yes (Hospitalization)
  Sender: FDA-Public Use
  Company Number: PROG00206000049

PATIENT
  Age: 64 Year
  Sex: Female
  Weight: 161 kg

DRUGS (6)
  1. PROMETRIUM [Suspect]
     Indication: MENOPAUSAL SYMPTOMS
     Dosage: 200 MILLIGRAM(S) QD ORAL DAILY DOSE: 200 MILLIGRAM(S)
     Route: 048
     Dates: start: 20050414, end: 20050425
  2. ESTERIFIED ESTROGEN [Suspect]
     Indication: MENOPAUSAL SYMPTOMS
     Dosage: 1.25 MILLIGRA(S) QD ORAL DAILY DOSE: 1.25 MILLIGRAM(S)
     Route: 048
     Dates: start: 20050112, end: 20050407
  3. ESTRATEST H.S. [Suspect]
     Indication: MENOPAUSAL SYMPTOMS
     Dosage: 1 DOSAGE FORM QD ORAL DAILY DOSE: 1 DOSAGE FORM
     Dates: start: 20050408, end: 20050505
  4. PREMPRO [Suspect]
     Indication: MENOPAUSE
     Dosage: 0.625 MILLIGRAM(S) QD ORAL DAILY DOSE: .625 MILLIGRAM(S)
     Route: 048
     Dates: start: 19910101, end: 19911128
  5. IBUPROFEN [Concomitant]
  6. AMOXICILLIN [Concomitant]

REACTIONS (6)
  - DIVERTICULITIS [None]
  - ENDOMETRIAL CANCER [None]
  - ENDOMETRIAL HYPERPLASIA [None]
  - FALLOPIAN TUBE CYST [None]
  - LEIOMYOMA [None]
  - UTERINE LEIOMYOMA [None]
